FAERS Safety Report 22590835 (Version 3)
Quarter: 2023Q2

REPORT INFORMATION
  Report Type: Report from Study
  Country: US (occurrence: US)
  Receive Date: 20230612
  Receipt Date: 20230629
  Transmission Date: 20230721
  Serious: Yes (Other)
  Sender: FDA-Public Use
  Company Number: US-TAKEDA-2023TUS057016

PATIENT
  Sex: Female

DRUGS (1)
  1. VEDOLIZUMAB [Suspect]
     Active Substance: VEDOLIZUMAB
     Indication: Crohn^s disease
     Dosage: 300 MILLIGRAM
     Route: 042
     Dates: start: 2017

REACTIONS (8)
  - Colitis ulcerative [Unknown]
  - Lung disorder [Unknown]
  - Cardiac disorder [Unknown]
  - Depression [Unknown]
  - Pain [Unknown]
  - Confusional state [Unknown]
  - Feeling abnormal [Unknown]
  - Constipation [Unknown]
